FAERS Safety Report 12537512 (Version 1)
Quarter: 2016Q3

REPORT INFORMATION
  Report Type: Spontaneous
  Country: CA (occurrence: CA)
  Receive Date: 20160707
  Receipt Date: 20160707
  Transmission Date: 20161109
  Serious: Yes (Other)
  Sender: FDA-Public Use
  Company Number: CA-AMAG PHARMACEUTICALS, INC.-AMAG201400131

PATIENT
  Age: 82 Year
  Sex: Male
  Weight: 64 kg

DRUGS (23)
  1. ACETYLSALICYLIC ACID [Concomitant]
     Active Substance: ASPIRIN
     Dosage: 81 MG, QD
     Route: 048
  2. FINASTERIDE. [Concomitant]
     Active Substance: FINASTERIDE
     Dosage: 5 MG, QD
     Route: 048
  3. FERAHEME [Suspect]
     Active Substance: FERUMOXYTOL NON-STOICHIOMETRIC MAGNETITE
     Dosage: 510 MG, SINGLE
     Route: 042
  4. SENNOSIDE [Concomitant]
     Active Substance: SENNOSIDES
     Dosage: 8.6 MG, BID
     Route: 048
     Dates: start: 201309
  5. PANTOPRAZOLE [Concomitant]
     Active Substance: PANTOPRAZOLE SODIUM
     Dosage: UNK
  6. SALBUTAMOL [Concomitant]
     Active Substance: ALBUTEROL
     Dosage: 2 PUFF (100 MCG/PUFF INHALATION), QID PRN
     Route: 055
     Dates: start: 201309
  7. TECTA [Concomitant]
     Active Substance: PANTOPRAZOLE MAGNESIUM
     Dosage: 40 MG, QD
     Route: 048
     Dates: start: 201309
  8. TAMSULOSIN SR [Concomitant]
     Dosage: 0.1 MG, QD
     Route: 048
  9. ACETAMINOPHEN. [Concomitant]
     Active Substance: ACETAMINOPHEN
     Dosage: 650 MG, QID
     Route: 048
  10. AMLODIPINE [Concomitant]
     Active Substance: AMLODIPINE BESYLATE
     Dosage: 5 MG, QD
     Route: 048
  11. CALCIUM CARBONATE. [Concomitant]
     Active Substance: CALCIUM CARBONATE
     Dosage: 500 MG, TID
     Route: 048
  12. TRAZODONE [Concomitant]
     Active Substance: TRAZODONE HYDROCHLORIDE
     Dosage: 75 MG, QHS
     Route: 048
  13. SITAGLIPTIN [Concomitant]
     Active Substance: SITAGLIPTIN
     Dosage: 25 MG, QD
     Route: 048
     Dates: start: 201309
  14. FUROSEMIDE. [Concomitant]
     Active Substance: FUROSEMIDE
     Dosage: Q20 MG, QD
     Route: 048
  15. EPOETIN ALFA [Concomitant]
     Active Substance: ERYTHROPOIETIN
     Dosage: 3600 ?G, WEEKLY
     Route: 058
     Dates: start: 2013
  16. JANUVIA [Concomitant]
     Active Substance: SITAGLIPTIN PHOSPHATE
     Dosage: UNK
  17. LACTULOSE. [Concomitant]
     Active Substance: LACTULOSE
     Dosage: 15 ML, QD
     Route: 048
  18. EPREX STERILE SOLUTION [Concomitant]
     Dosage: UNK
  19. METOPROLOL. [Concomitant]
     Active Substance: METOPROLOL
     Dosage: 25 MG, BID
     Route: 048
  20. MULTIPLE VITAMINS [Concomitant]
     Active Substance: VITAMINS
     Dosage: UNK
  21. GLYCERYL TRINITRATE [Concomitant]
     Active Substance: NITROGLYCERIN
     Dosage: 0.4 MG/HR , QD
     Route: 061
     Dates: start: 201310
  22. THIAMINE. [Concomitant]
     Active Substance: THIAMINE
     Dosage: 100 MG, QD
     Route: 048
  23. REPLAVITE [Concomitant]
     Dosage: 1 TABS, QD
     Route: 048

REACTIONS (4)
  - Hyperhidrosis [Recovered/Resolved]
  - Anaphylactic reaction [Recovered/Resolved]
  - Hypotension [Recovered/Resolved]
  - Rash [Recovered/Resolved]
